FAERS Safety Report 10215444 (Version 1)
Quarter: 2014Q2

REPORT INFORMATION
  Report Type: Not Available
  Country: PL (occurrence: PL)
  Receive Date: 20140604
  Receipt Date: 20140604
  Transmission Date: 20141212
  Serious: Yes (Other)
  Sender: FDA-Public Use
  Company Number: PL-BEH-2014042869

PATIENT
  Age: 4 Year
  Sex: Male

DRUGS (1)
  1. SANDOGLOBULIN P [Suspect]
     Route: 042
     Dates: start: 20140205, end: 20140205

REACTIONS (7)
  - Oxygen saturation decreased [Unknown]
  - Cyanosis [Unknown]
  - Cardiovascular disorder [Unknown]
  - Blood pressure decreased [Unknown]
  - Heart rate increased [Unknown]
  - Chills [Unknown]
  - Cyanosis [None]
